FAERS Safety Report 20691270 (Version 2)
Quarter: 2022Q2

REPORT INFORMATION
  Report Type: Spontaneous
  Country: JP (occurrence: JP)
  Receive Date: 20220408
  Receipt Date: 20220420
  Transmission Date: 20220721
  Serious: Yes (Hospitalization, Congenital Anomaly, Other)
  Sender: FDA-Public Use
  Company Number: JP-BRISTOL-MYERS SQUIBB COMPANY-BMS-2022-040300

PATIENT
  Age: 79 Year
  Sex: Female

DRUGS (6)
  1. OPDIVO [Suspect]
     Active Substance: NIVOLUMAB
     Indication: Pleural mesothelioma malignant
     Route: 065
     Dates: start: 202202
  2. OPDIVO [Suspect]
     Active Substance: NIVOLUMAB
  3. OPDIVO [Suspect]
     Active Substance: NIVOLUMAB
  4. YERVOY [Suspect]
     Active Substance: IPILIMUMAB
     Indication: Pleural mesothelioma malignant
     Dosage: UNK
     Dates: start: 202202
  5. YERVOY [Suspect]
     Active Substance: IPILIMUMAB
  6. YERVOY [Suspect]
     Active Substance: IPILIMUMAB

REACTIONS (3)
  - Disseminated intravascular coagulation [Unknown]
  - Haemophagocytic lymphohistiocytosis [Unknown]
  - Muscular weakness [Recovering/Resolving]

NARRATIVE: CASE EVENT DATE: 20220301
